FAERS Safety Report 8989682 (Version 3)
Quarter: 2013Q4

REPORT INFORMATION
  Report Type: Spontaneous
  Country: US (occurrence: US)
  Receive Date: 20121227
  Receipt Date: 20131226
  Transmission Date: 20140711
  Serious: Yes (Hospitalization)
  Sender: FDA-Public Use
  Company Number: US-ASTRAZENECA-2012SE94579

PATIENT
  Age: 67 Year
  Sex: Female
  Weight: 99.8 kg

DRUGS (10)
  1. NEXIUM [Suspect]
     Indication: GASTROOESOPHAGEAL REFLUX DISEASE
     Route: 048
     Dates: start: 2000, end: 2006
  2. NEXIUM [Suspect]
     Indication: GASTROOESOPHAGEAL REFLUX DISEASE
     Route: 048
     Dates: start: 20030204
  3. OMEPRAZOLE [Suspect]
     Indication: GASTROOESOPHAGEAL REFLUX DISEASE
     Route: 048
     Dates: start: 1994, end: 2000
  4. TRICOR [Concomitant]
     Indication: BLOOD CHOLESTEROL ABNORMAL
     Route: 048
     Dates: start: 20060714
  5. LOVASTATIN [Concomitant]
     Indication: BLOOD CHOLESTEROL ABNORMAL
     Route: 048
     Dates: start: 20060714
  6. METFORMIN [Concomitant]
     Route: 048
     Dates: start: 20060712
  7. AMOXYCILLIN [Concomitant]
     Indication: INFECTION
     Route: 048
     Dates: start: 20060915
  8. ZANTAC [Concomitant]
  9. TUMS OTC [Concomitant]
     Indication: DYSPEPSIA
     Dosage: AS NEEDED
     Dates: start: 1992, end: 1994
  10. ALKA SELTZER OTC [Concomitant]
     Indication: DYSPEPSIA
     Dosage: AS NEEDED
     Dates: start: 1992, end: 1994

REACTIONS (12)
  - Loss of consciousness [Unknown]
  - Dehydration [Unknown]
  - Bronchitis [Unknown]
  - Bone disorder [Unknown]
  - Osteoporosis [Unknown]
  - Ankle fracture [Unknown]
  - Fall [Unknown]
  - Joint injury [Unknown]
  - Multiple fractures [Unknown]
  - Diabetes mellitus [Unknown]
  - Cataract [Unknown]
  - Arthritis [Unknown]
